FAERS Safety Report 17670444 (Version 1)
Quarter: 2020Q2

REPORT INFORMATION
  Report Type: Spontaneous
  Country: FR (occurrence: FR)
  Receive Date: 20200415
  Receipt Date: 20200415
  Transmission Date: 20200713
  Serious: Yes (Hospitalization)
  Sender: FDA-Public Use
  Company Number: FR-TEVA-2020-FR-1223094

PATIENT
  Age: 72 Year
  Sex: Female

DRUGS (4)
  1. DOCETAXEL. [Suspect]
     Active Substance: DOCETAXEL
     Indication: BREAST CANCER
     Dosage: 160 MG
     Route: 042
     Dates: start: 20191106, end: 20200124
  2. EPIRUBICINE [Suspect]
     Active Substance: EPIRUBICIN
     Indication: BREAST CANCER
     Dosage: 162 MG
     Route: 042
     Dates: start: 20191003, end: 20191115
  3. HERCEPTIN [Suspect]
     Active Substance: TRASTUZUMAB
     Indication: BREAST CANCER
     Dosage: 462 MG
     Route: 042
     Dates: start: 20191206, end: 20200214
  4. CYCLOPHOSPHAMIDE. [Suspect]
     Active Substance: CYCLOPHOSPHAMIDE
     Indication: BREAST CANCER
     Dosage: 800 MG
     Route: 042
     Dates: start: 20191003, end: 20191115

REACTIONS (1)
  - Ventricular dysfunction [Not Recovered/Not Resolved]

NARRATIVE: CASE EVENT DATE: 20200306
